FAERS Safety Report 8572769-6 (Version None)
Quarter: 2012Q3

REPORT INFORMATION
  Report Type: 
  Country: None (occurrence: None)
  Receive Date: 20120806
  Receipt Date: 20120726
  Transmission Date: 20120928
  Serious: Yes (Hospitalization, Other)
  Sender: FDA-Public Use
  Company Number: CN-ASTRAZENECA-2012SE54332

PATIENT
  Sex: Female
  Weight: 50 kg

DRUGS (1)
  1. CRESTOR [Suspect]
     Indication: HYPERLIPIDAEMIA
     Route: 048
     Dates: start: 20090125, end: 20090206

REACTIONS (3)
  - HEMIPARESIS [None]
  - DYSARTHRIA [None]
  - ALBUMIN GLOBULIN RATIO ABNORMAL [None]
